FAERS Safety Report 8531274-3 (Version None)
Quarter: 2012Q3

REPORT INFORMATION
  Report Type: 
  Country: None (occurrence: None)
  Receive Date: 20120723
  Receipt Date: 20120711
  Transmission Date: 20120928
  Serious: Yes (Other)
  Sender: FDA-Public Use
  Company Number: JP-VERTEX PHARMACEUTICALS INC.-AE-2012-010459

PATIENT
  Age: 63 Year
  Sex: Male

DRUGS (8)
  1. TELAVIC (TELAPREVIR) [Suspect]
     Indication: HEPATITIS C
     Route: 048
     Dates: start: 20120414, end: 20120707
  2. RIBAVIRIN [Concomitant]
     Indication: HEPATITIS C
     Route: 048
     Dates: start: 20120629
  3. PEGINTERFERON ALFA-2B [Concomitant]
  4. RIBAVIRIN [Concomitant]
     Route: 048
     Dates: start: 20120630
  5. PROMACTA [Concomitant]
     Route: 048
  6. PEGINTERFERON ALFA-2B [Concomitant]
     Indication: HEPATITIS C
     Route: 058
  7. SEVEN E P [Concomitant]
     Route: 048
  8. ALLOPURINOL [Concomitant]
     Route: 048
     Dates: start: 20120519

REACTIONS (1)
  - WHITE BLOOD CELL COUNT DECREASED [None]
